FAERS Safety Report 9897574 (Version 1)
Quarter: 2014Q1

REPORT INFORMATION
  Report Type: Spontaneous
  Country: CH (occurrence: CH)
  Receive Date: 20140214
  Receipt Date: 20140214
  Transmission Date: 20141002
  Serious: Yes (Other)
  Sender: FDA-Public Use
  Company Number: CH-ASTRAZENECA-2014SE08502

PATIENT
  Age: 24429 Day
  Sex: Female

DRUGS (2)
  1. CRESTOR [Suspect]
     Indication: CORONARY ARTERY DISEASE
     Route: 048
     Dates: start: 201202, end: 20140108
  2. METFORMIN [Concomitant]

REACTIONS (2)
  - Rhabdomyolysis [Recovered/Resolved]
  - Fatigue [Recovered/Resolved]
